FAERS Safety Report 8984846 (Version 1)
Quarter: 2012Q4

REPORT INFORMATION
  Report Type: Report from Study
  Country: CA (occurrence: CA)
  Receive Date: 20121225
  Receipt Date: 20121225
  Transmission Date: 20130627
  Serious: Yes (Other)
  Sender: FDA-Public Use
  Company Number: CA-JNJFOC-20121207860

PATIENT
  Sex: Male
  Weight: 91.8 kg

DRUGS (8)
  1. REMICADE [Suspect]
     Indication: CROHN^S DISEASE
     Route: 042
     Dates: start: 20100206
  2. REMICADE [Suspect]
     Indication: CROHN^S DISEASE
     Dosage: 23rd infusion
     Route: 042
     Dates: start: 20121027
  3. DICLOFENAC [Concomitant]
     Indication: ARTHRITIS
     Route: 065
  4. COQ10 [Concomitant]
     Route: 065
  5. MULTIVITE [Concomitant]
     Route: 065
  6. VIT-D [Concomitant]
     Route: 065
  7. IRON [Concomitant]
     Route: 065
  8. FISH OIL [Concomitant]
     Route: 065

REACTIONS (2)
  - Nasal septum deviation [Recovered/Resolved]
  - Facial bones fracture [Recovered/Resolved]
